FAERS Safety Report 10101279 (Version 1)
Quarter: 2014Q2

REPORT INFORMATION
  Report Type: Spontaneous
  Country: US (occurrence: None)
  Receive Date: 20140423
  Receipt Date: 20140423
  Transmission Date: 20141212
  Serious: No
  Sender: FDA-Public Use
  Company Number: None

PATIENT
  Age: 46 Year
  Sex: Female

DRUGS (2)
  1. DEXAMETHASONE [Suspect]
     Indication: OSTEITIS
     Dosage: 1 INJECTION, 1 TIME, INTO AREA AROUND A BONE
     Dates: start: 20140421
  2. DEXAMETHASONE [Suspect]
     Dosage: 1 INJECTION, 1 TIME, INTO AREA AROUND A BONE
     Dates: start: 20140421

REACTIONS (6)
  - Pruritus [None]
  - Headache [None]
  - Palpitations [None]
  - Hypertension [None]
  - Erythema [None]
  - Erythema [None]
